FAERS Safety Report 14988539 (Version 1)
Quarter: 2018Q2

REPORT INFORMATION
  Report Type: Spontaneous
  Country: US (occurrence: US)
  Receive Date: 20180608
  Receipt Date: 20180608
  Transmission Date: 20180711
  Serious: Yes (Other)
  Sender: FDA-Public Use
  Company Number: US-PFIZER INC-2018231845

PATIENT
  Age: 48 Year
  Sex: Male

DRUGS (2)
  1. CABERGOLINE. [Suspect]
     Active Substance: CABERGOLINE
     Indication: PROLACTIN-PRODUCING PITUITARY TUMOUR
     Dosage: UNK
  2. CABERGOLINE. [Suspect]
     Active Substance: CABERGOLINE
     Indication: PITUITARY TUMOUR BENIGN

REACTIONS (3)
  - Empty sella syndrome [Recovering/Resolving]
  - Hemianopia heteronymous [Recovering/Resolving]
  - Visual pathway disorder [Recovering/Resolving]
